FAERS Safety Report 6174017-3 (Version None)
Quarter: 2009Q2

REPORT INFORMATION
  Report Type: 
  Country: None (occurrence: None)
  Receive Date: 20090430
  Receipt Date: 20080610
  Transmission Date: 20091009
  Serious: No
  Sender: FDA-Public Use
  Company Number: US-ASTRAZENECA-2007UW29007

PATIENT
  Age: 45 Year
  Sex: Female
  Weight: 86.2 kg

DRUGS (6)
  1. NEXIUM [Suspect]
     Indication: DYSPEPSIA
     Route: 048
  2. ASCORBIC ACID [Concomitant]
  3. LOVAZA [Concomitant]
  4. VITAMIN E [Concomitant]
  5. CITRICAL [Concomitant]
  6. MULTI-VITAMINS [Concomitant]

REACTIONS (2)
  - PRODUCT QUALITY ISSUE [None]
  - VOMITING [None]
